FAERS Safety Report 20365776 (Version 1)
Quarter: 2022Q1

REPORT INFORMATION
  Report Type: Spontaneous
  Country: US (occurrence: US)
  Receive Date: 20220123
  Receipt Date: 20220123
  Transmission Date: 20220424
  Serious: No
  Sender: FDA-Public Use
  Company Number: US-AMGEN-USASP2022006217

PATIENT
  Age: 70 Year
  Sex: Female

DRUGS (3)
  1. REPATHA [Suspect]
     Active Substance: EVOLOCUMAB
     Indication: Blood cholesterol increased
     Dosage: 10 MILLIGRAM, Q2WK
     Route: 065
     Dates: start: 202110
  2. REPATHA [Suspect]
     Active Substance: EVOLOCUMAB
     Dosage: 10 MILLIGRAM, Q2WK
     Route: 065
     Dates: start: 202111
  3. REPATHA [Suspect]
     Active Substance: EVOLOCUMAB
     Dosage: 10 MILLIGRAM, Q2WK
     Route: 065
     Dates: start: 202112

REACTIONS (2)
  - COVID-19 [Unknown]
  - Alopecia [Recovered/Resolved]
